FAERS Safety Report 4742991-5 (Version None)
Quarter: 2005Q3

REPORT INFORMATION
  Report Type: 
  Country: None (occurrence: None)
  Receive Date: 20050811
  Receipt Date: 20050809
  Transmission Date: 20060218
  Serious: Yes (Hospitalization, Other)
  Sender: FDA-Public Use
  Company Number: DE-BRISTOL-MYERS SQUIBB COMPANY-13070727

PATIENT
  Age: 56 Year
  Sex: Female
  Weight: 59 kg

DRUGS (10)
  1. CYCLOPHOSPHAMIDE [Suspect]
     Indication: BREAST CANCER
     Route: 042
     Dates: start: 20050808, end: 20050808
  2. TAXOL [Suspect]
     Indication: BREAST CANCER
     Route: 042
     Dates: start: 20050718, end: 20050718
  3. EPIRUBICIN [Suspect]
     Indication: BREAST CANCER
     Route: 042
     Dates: start: 20050530, end: 20050530
  4. UROMITEXAN [Suspect]
     Indication: PROPHYLAXIS
     Route: 042
     Dates: start: 20050808, end: 20050808
  5. CLEMASTINE FUMARATE [Concomitant]
     Indication: PREMEDICATION
     Route: 042
     Dates: start: 20050808, end: 20050808
  6. RANITIDINE [Concomitant]
     Indication: PREMEDICATION
     Route: 042
     Dates: start: 20050808, end: 20050808
  7. DEXAMETHASONE [Concomitant]
     Indication: PREMEDICATION
     Route: 042
     Dates: start: 20050808, end: 20050808
  8. ZOFRAN [Concomitant]
     Indication: PREMEDICATION
     Route: 042
     Dates: start: 20050808, end: 20050808
  9. DARBEPOETIN ALFA [Concomitant]
     Route: 058
     Dates: start: 20050502, end: 20050808
  10. PEGFILGRASTIM [Concomitant]
     Route: 058
     Dates: start: 20050502, end: 20050808

REACTIONS (1)
  - HYPOTENSION [None]
